FAERS Safety Report 23323061 (Version 1)
Quarter: 2023Q4

REPORT INFORMATION
  Report Type: Other
  Country: US (occurrence: None)
  Receive Date: 20231220
  Receipt Date: 20231220
  Transmission Date: 20240110
  Serious: Yes (Hospitalization)
  Sender: FDA-Public Use
  Company Number: US-ROCHE-3286809

PATIENT
  Age: 26 Year
  Sex: Male

DRUGS (9)
  1. RITUXIMAB [Suspect]
     Active Substance: RITUXIMAB
     Indication: Dermatomyositis
     Dosage: ON DAYS 0 AND 14
     Route: 041
  2. MYCOPHENOLATE MOFETIL [Suspect]
     Active Substance: MYCOPHENOLATE MOFETIL
     Indication: Dermatomyositis
     Route: 065
  3. PREDNISONE [Suspect]
     Active Substance: PREDNISONE
     Indication: Dermatomyositis
     Route: 065
  4. PREDNISONE [Suspect]
     Active Substance: PREDNISONE
     Route: 065
  5. AZATHIOPRINE [Suspect]
     Active Substance: AZATHIOPRINE
     Indication: Dermatomyositis
     Route: 065
  6. HYDROXYCHLOROQUINE [Suspect]
     Active Substance: HYDROXYCHLOROQUINE
     Indication: Dermatomyositis
     Route: 065
  7. METHYLPREDNISOLONE [Concomitant]
     Active Substance: METHYLPREDNISOLONE
  8. TACROLIMUS [Concomitant]
     Active Substance: TACROLIMUS
  9. LEVOTHYROXINE [Concomitant]
     Active Substance: LEVOTHYROXINE
     Indication: Autoimmune thyroiditis

REACTIONS (1)
  - Pneumonia aspiration [Unknown]
